FAERS Safety Report 6520326-5 (Version None)
Quarter: 2009Q4

REPORT INFORMATION
  Report Type: 
  Country: None (occurrence: None)
  Receive Date: 20091229
  Receipt Date: 20091217
  Transmission Date: 20100525
  Serious: Yes (Life-Threatening, Hospitalization, Other)
  Sender: FDA-Public Use
  Company Number: FR-BAYER-200943558GPV

PATIENT
  Age: 82 Year
  Sex: Female
  Weight: 59 kg

DRUGS (8)
  1. FLUDARA [Suspect]
     Indication: WALDENSTROM'S MACROGLOBULINAEMIA
     Dosage: 2 CYCLES
     Route: 042
     Dates: start: 20020901, end: 20021001
  2. CHLORAMINOPHEN [Suspect]
     Indication: WALDENSTROM'S MACROGLOBULINAEMIA
     Dates: start: 20000101, end: 20000101
  3. BISOPROLOL BIOGARAN [Concomitant]
     Indication: HYPERTENSION
  4. ARANESP [Concomitant]
  5. ENDOTELON [Concomitant]
  6. FOSAMAX [Concomitant]
  7. ZELITREX [Concomitant]
  8. ANTICOAGULANT NOS [Concomitant]
     Indication: VENOUS THROMBOSIS

REACTIONS (3)
  - CHRONIC LYMPHOCYTIC LEUKAEMIA TRANSFORMATION [None]
  - INTERSTITIAL LUNG DISEASE [None]
  - NON-HODGKIN'S LYMPHOMA [None]
